FAERS Safety Report 14479922 (Version 1)
Quarter: 2018Q1

REPORT INFORMATION
  Report Type: Spontaneous
  Country: US (occurrence: US)
  Receive Date: 20180201
  Receipt Date: 20180201
  Transmission Date: 20180509
  Serious: Yes (Hospitalization)
  Sender: FDA-Public Use
  Company Number: None

PATIENT
  Age: 32 Year
  Sex: Male

DRUGS (8)
  1. AMPHOTERICIN B. [Concomitant]
     Active Substance: AMPHOTERICIN B
  2. VANCOMYCIN [Concomitant]
     Active Substance: VANCOMYCIN
  3. PANTOPRAZOLE [Suspect]
     Active Substance: PANTOPRAZOLE
  4. MEROPENEM. [Suspect]
     Active Substance: MEROPENEM
  5. FLUCONAZOLE. [Concomitant]
     Active Substance: FLUCONAZOLE
  6. CEFEPIME [Concomitant]
     Active Substance: CEFEPIME HYDROCHLORIDE
  7. ANIDULAFUNGIN [Concomitant]
     Active Substance: ANIDULAFUNGIN
  8. DAPTOMYCIN. [Concomitant]
     Active Substance: DAPTOMYCIN

REACTIONS (5)
  - Bacterial infection [None]
  - Diarrhoea [None]
  - Fungal infection [None]
  - Clostridium test positive [None]
  - Flank pain [None]
